FAERS Safety Report 5257521-1 (Version None)
Quarter: 2007Q1

REPORT INFORMATION
  Report Type: 
  Country: None (occurrence: None)
  Receive Date: 20070307
  Receipt Date: 20061101
  Transmission Date: 20070707
  Serious: No
  Sender: FDA-Public Use
  Company Number: US-GLAXOSMITHKLINE-A0619034A

PATIENT
  Age: 36 Year
  Sex: Female

DRUGS (1)
  1. REQUIP [Suspect]
     Indication: DRUG USE FOR UNKNOWN INDICATION
     Dosage: 1.5MG AT NIGHT
     Route: 048

REACTIONS (2)
  - MUSCLE SPASMS [None]
  - THERAPEUTIC RESPONSE DECREASED [None]
